FAERS Safety Report 10700174 (Version 3)
Quarter: 2015Q2

REPORT INFORMATION
  Report Type: Spontaneous
  Country: US (occurrence: US)
  Receive Date: 20150109
  Receipt Date: 20150417
  Transmission Date: 20150821
  Serious: Yes (Death)
  Sender: FDA-Public Use
  Company Number: US-PFIZER INC-2014307378

PATIENT
  Age: 75 Year
  Sex: Male
  Weight: 54.4 kg

DRUGS (11)
  1. LISINOPRIL. [Concomitant]
     Active Substance: LISINOPRIL
     Dosage: UNK
  2. POTASSIUM [Concomitant]
     Active Substance: POTASSIUM
     Dosage: UNK
  3. HYDROCHLOROTHIAZIDE. [Concomitant]
     Active Substance: HYDROCHLOROTHIAZIDE
     Dosage: UNK
  4. SUTENT [Suspect]
     Active Substance: SUNITINIB MALATE
     Indication: HAEMANGIOPERICYTOMA
     Dosage: 37.5 MG, DAILY
     Dates: start: 20141104, end: 20141216
  5. SPIRIVA [Concomitant]
     Active Substance: TIOTROPIUM BROMIDE MONOHYDRATE
     Dosage: UNK
  6. SIMVASTATIN. [Concomitant]
     Active Substance: SIMVASTATIN
     Dosage: UNK
  7. PROTONIX [Concomitant]
     Active Substance: PANTOPRAZOLE SODIUM
     Dosage: UNK
  8. SUTENT [Suspect]
     Active Substance: SUNITINIB MALATE
     Dosage: 12.5 MG, DAILY
     Dates: start: 20150107, end: 20150227
  9. ALBUTEROL. [Concomitant]
     Active Substance: ALBUTEROL
     Dosage: UNK
  10. PEPCID [Concomitant]
     Active Substance: FAMOTIDINE
     Dosage: UNK
  11. CALCIUM + VIT D [Concomitant]
     Active Substance: CALCIUM\VITAMIN D
     Dosage: UNK

REACTIONS (5)
  - Stomatitis [Unknown]
  - Swelling face [Unknown]
  - Product use issue [Unknown]
  - Blister [Unknown]
  - Death [Fatal]
